FAERS Safety Report 4398596-1 (Version None)
Quarter: 2004Q3

REPORT INFORMATION
  Report Type: 
  Country: None (occurrence: None)
  Receive Date: 20040712
  Receipt Date: 20040630
  Transmission Date: 20050211
  Serious: Yes (Other)
  Sender: FDA-Public Use
  Company Number: JP-JNJFOC-20040700647

PATIENT
  Age: 78 Year
  Sex: Female

DRUGS (5)
  1. ITRACONAZOLE [Suspect]
     Indication: BODY TINEA
     Dosage: ORAL
     Route: 048
     Dates: start: 20040204, end: 20040614
  2. ITRACONAZOLE [Suspect]
     Indication: ONYCHOMYCOSIS
     Dosage: ORAL
     Route: 048
     Dates: start: 20040204, end: 20040614
  3. APRINDINE HYDROCHLORIDE (APRINDINE HYDROCHLORIDE) UNSECIFIED [Suspect]
     Indication: DRUG USE FOR UNKNOWN INDICATION
     Dates: start: 20021111, end: 20040614
  4. FAMOTIDINE [Concomitant]
  5. SIMVASTATIN [Concomitant]

REACTIONS (2)
  - DRUG INTERACTION [None]
  - LONG QT SYNDROME [None]
